FAERS Safety Report 6606733-0 (Version None)
Quarter: 2010Q1

REPORT INFORMATION
  Report Type: 
  Country: None (occurrence: None)
  Receive Date: 20100226
  Receipt Date: 20100222
  Transmission Date: 20100710
  Serious: Yes (Other)
  Sender: FDA-Public Use
  Company Number: US-GENENTECH-298494

PATIENT
  Sex: Male
  Weight: 63.6 kg

DRUGS (1)
  1. LUCENTIS [Suspect]
     Indication: MACULAR DEGENERATION
     Dosage: UNK
     Route: 031
     Dates: start: 20060701

REACTIONS (2)
  - GLAUCOMA [None]
  - INTRAOCULAR PRESSURE INCREASED [None]
